FAERS Safety Report 17812578 (Version 1)
Quarter: 2020Q2

REPORT INFORMATION
  Report Type: Spontaneous
  Country: US (occurrence: US)
  Receive Date: 20200521
  Receipt Date: 20200521
  Transmission Date: 20200714
  Serious: No
  Sender: FDA-Public Use
  Company Number: None

PATIENT
  Age: 32 Year
  Sex: Female
  Weight: 78.75 kg

DRUGS (5)
  1. METOPOROLOL SUCCINATE ER [Concomitant]
     Active Substance: METOPROLOL SUCCINATE
  2. BOTOX [Suspect]
     Active Substance: ONABOTULINUMTOXINA
     Indication: MIGRAINE
     Dates: start: 20200204, end: 20200507
  3. MAXALT [Concomitant]
     Active Substance: RIZATRIPTAN BENZOATE
  4. COLANOR [Concomitant]
  5. FOLIC ACID. [Concomitant]
     Active Substance: FOLIC ACID

REACTIONS (10)
  - Dizziness [None]
  - Dry mouth [None]
  - Arthralgia [None]
  - Diplopia [None]
  - Pyrexia [None]
  - Loss of personal independence in daily activities [None]
  - Tachycardia [None]
  - Influenza like illness [None]
  - Asthenia [None]
  - Rash [None]

NARRATIVE: CASE EVENT DATE: 20200207
